FAERS Safety Report 9655265 (Version 2)
Quarter: 2013Q4

REPORT INFORMATION
  Report Type: Spontaneous
  Country: US (occurrence: US)
  Receive Date: 20131029
  Receipt Date: 20131029
  Transmission Date: 20140711
  Serious: Yes (Other)
  Sender: FDA-Public Use
  Company Number: US-NAPPMUNDI-USA-2010-0054393

PATIENT
  Sex: Female
  Weight: 58.96 kg

DRUGS (1)
  1. OXYCONTIN (NDA 22-272) [Suspect]
     Indication: PAIN
     Dosage: 80 MG, SEE TEXT
     Dates: start: 200409

REACTIONS (6)
  - Drug dependence [Unknown]
  - Muscle spasms [Unknown]
  - Feeling of body temperature change [Unknown]
  - Nausea [Unknown]
  - Malaise [Unknown]
  - Anxiety [Unknown]
